FAERS Safety Report 18839594 (Version 1)
Quarter: 2021Q1

REPORT INFORMATION
  Report Type: Report from Study
  Country: US (occurrence: US)
  Receive Date: 20210203
  Receipt Date: 20210203
  Transmission Date: 20210419
  Serious: No
  Sender: FDA-Public Use
  Company Number: US-EXELIXIS-CABO-20035248

PATIENT
  Sex: Male

DRUGS (4)
  1. TYLENOL EXTRA STRENGTH [Concomitant]
     Active Substance: ACETAMINOPHEN
     Dosage: UNK
  2. MULTIVITAMIN [Concomitant]
     Active Substance: VITAMINS
     Dosage: UNK
  3. CABOMETYX [Suspect]
     Active Substance: CABOZANTINIB S-MALATE
     Indication: HEPATOCELLULAR CARCINOMA
     Dosage: 60 MG, QD
     Route: 048
     Dates: start: 20201029
  4. CABOMETYX [Suspect]
     Active Substance: CABOZANTINIB S-MALATE
     Dosage: 30 MG, QD (HALF TABLET OF 60 MG)
     Route: 048

REACTIONS (15)
  - Oropharyngeal pain [Unknown]
  - Rash [Unknown]
  - Drug intolerance [Unknown]
  - Lip swelling [Unknown]
  - Wrong technique in product usage process [Unknown]
  - Diarrhoea [Unknown]
  - Nasal congestion [Unknown]
  - Epistaxis [Unknown]
  - Nausea [Unknown]
  - Rectal ulcer [Unknown]
  - Anorectal discomfort [Unknown]
  - Headache [Unknown]
  - Productive cough [Unknown]
  - Constipation [Unknown]
  - Fatigue [Unknown]
